FAERS Safety Report 5046009-9 (Version None)
Quarter: 2006Q2

REPORT INFORMATION
  Report Type: 
  Country: None (occurrence: None)
  Receive Date: 20060629
  Receipt Date: 20060616
  Transmission Date: 20061013
  Serious: Yes (Hospitalization)
  Sender: FDA-Public Use
  Company Number: 2006079562

PATIENT
  Age: 67 Year
  Sex: Male
  Weight: 59.8 kg

DRUGS (11)
  1. IRINOTECAN HCL [Suspect]
     Indication: GASTRIC CANCER
     Dosage: 140 MG (INTRAVENOUS)
     Route: 042
     Dates: start: 20060523, end: 20060523
  2. TEGAFUR [Concomitant]
  3. AMLODIPINE [Concomitant]
  4. ENALAPRIL MALEATE [Concomitant]
  5. LANSOPRAZOLE [Concomitant]
  6. LASIX [Concomitant]
  7. ALDACTONE [Concomitant]
  8. AMARYL [Concomitant]
  9. PURSENNID (SENNA LEAF) [Concomitant]
  10. MAGNESIUM OXIDE [Concomitant]
  11. PREDNISOLONE [Concomitant]

REACTIONS (4)
  - BLOOD PRESSURE SYSTOLIC DECREASED [None]
  - DECREASED APPETITE [None]
  - DIFFICULTY IN WALKING [None]
  - INAPPROPRIATE ANTIDIURETIC HORMONE SECRETION [None]
